FAERS Safety Report 6165057-9 (Version None)
Quarter: 2009Q2

REPORT INFORMATION
  Report Type: 
  Country: None (occurrence: None)
  Receive Date: 20090423
  Receipt Date: 20090413
  Transmission Date: 20091009
  Serious: Yes (Hospitalization)
  Sender: FDA-Public Use
  Company Number: US-BAXTER-2009BH005320

PATIENT
  Age: 68 Year
  Sex: Female
  Weight: 104 kg

DRUGS (17)
  1. IGIV, UNSPECIFIED PRODUCT [Suspect]
     Indication: IMMUNODEFICIENCY COMMON VARIABLE
     Route: 042
     Dates: end: 20071205
  2. NORVASK [Concomitant]
  3. TOPAMAX [Concomitant]
  4. EFFEXOR [Concomitant]
  5. POTASSIUM CHLORIDE [Concomitant]
  6. TRANXENE [Concomitant]
  7. METOPROLOL SUCCINATE [Concomitant]
  8. TORSEMIDE [Concomitant]
  9. PRAMIPEXOLE DIHYDROCHLORIDE [Concomitant]
  10. COZAAR [Concomitant]
  11. SPIRONOLACTONE [Concomitant]
  12. LORTAB [Concomitant]
  13. PEPCID [Concomitant]
     Indication: PREMEDICATION
     Route: 042
     Dates: start: 20071205
  14. DEXAMETHASONE 4MG TAB [Concomitant]
     Indication: PREMEDICATION
     Dates: start: 20071205
  15. LIPITOR [Concomitant]
  16. PLAVIX [Concomitant]
  17. PROVIGIL [Concomitant]

REACTIONS (5)
  - CHEST DISCOMFORT [None]
  - CHILLS [None]
  - DYSPNOEA [None]
  - PYREXIA [None]
  - URTICARIA [None]
